FAERS Safety Report 14940493 (Version 1)
Quarter: 2018Q2

REPORT INFORMATION
  Report Type: Spontaneous
  Country: FR (occurrence: FR)
  Receive Date: 20180525
  Receipt Date: 20180525
  Transmission Date: 20180711
  Serious: Yes (Life-Threatening)
  Sender: FDA-Public Use
  Company Number: FR-PFIZER INC-2018210625

PATIENT
  Age: 70 Year
  Sex: Female

DRUGS (2)
  1. PACLITAXEL. [Interacting]
     Active Substance: PACLITAXEL
     Indication: OVARIAN CANCER
     Dosage: 378 MG, MONTHLY
     Route: 041
     Dates: start: 20171207, end: 20180308
  2. CARBOPLATIN. [Suspect]
     Active Substance: CARBOPLATIN
     Indication: OVARIAN CANCER
     Dosage: 690 MG, MONTHLY
     Route: 041
     Dates: start: 20171207, end: 20180308

REACTIONS (2)
  - Drug interaction [Unknown]
  - Neutropenia [Recovered/Resolved]

NARRATIVE: CASE EVENT DATE: 20180308
